FAERS Safety Report 11242395 (Version 3)
Quarter: 2015Q4

REPORT INFORMATION
  Report Type: Spontaneous
  Country: JP (occurrence: JP)
  Receive Date: 20150707
  Receipt Date: 20151204
  Transmission Date: 20160304
  Serious: Yes (Hospitalization, Other)
  Sender: FDA-Public Use
  Company Number: JP-AMGEN-JPNSP2015066115

PATIENT
  Age: 83 Year
  Sex: Female

DRUGS (2)
  1. METHOTREXATE SODIUM. [Suspect]
     Active Substance: METHOTREXATE SODIUM
     Indication: RHEUMATOID ARTHRITIS
     Dosage: 6 MG, WEEKLY
     Route: 048
     Dates: start: 20150605
  2. ENBREL [Suspect]
     Active Substance: ETANERCEPT
     Indication: RHEUMATOID ARTHRITIS
     Dosage: 25 MG, (0.5ML) WEEKLY
     Route: 058
     Dates: start: 20150605, end: 20150619

REACTIONS (5)
  - Subarachnoid haemorrhage [Recovering/Resolving]
  - Gastric ulcer [Recovering/Resolving]
  - Gastrointestinal ulcer [Unknown]
  - Condition aggravated [Unknown]
  - Hypertension [Unknown]

NARRATIVE: CASE EVENT DATE: 20150606
